FAERS Safety Report 4746372-X (Version None)
Quarter: 2005Q3

REPORT INFORMATION
  Report Type: 
  Country: None (occurrence: None)
  Receive Date: 20050810
  Receipt Date: 20050726
  Transmission Date: 20060218
  Serious: Yes (Hospitalization)
  Sender: FDA-Public Use
  Company Number: WSDF_00486

PATIENT
  Age: 26 Year
  Sex: Female
  Weight: 83 kg

DRUGS (1)
  1. WINRHO SDF [Suspect]
     Indication: FOETAL-MATERNAL HAEMORRHAGE
     Dosage: 4200 MCG ONCE IV
     Route: 042
     Dates: start: 20050708, end: 20050708

REACTIONS (5)
  - BREAST PAIN [None]
  - CHILLS [None]
  - HOT FLUSH [None]
  - MYALGIA [None]
  - POSTPARTUM DISORDER [None]
